FAERS Safety Report 17556816 (Version 1)
Quarter: 2020Q1

REPORT INFORMATION
  Report Type: Spontaneous
  Country: US (occurrence: US)
  Receive Date: 20200318
  Receipt Date: 20200318
  Transmission Date: 20200409
  Serious: No
  Sender: FDA-Public Use
  Company Number: US-ELI_LILLY_AND_COMPANY-US202003001336

PATIENT

DRUGS (1)
  1. EMGALITY [Suspect]
     Active Substance: GALCANEZUMAB-GNLM
     Indication: MIGRAINE
     Dosage: 1 DOSAGE FORM, UNKNOWN
     Route: 065

REACTIONS (9)
  - Nightmare [Unknown]
  - Palpitations [Unknown]
  - Depression [Unknown]
  - Abdominal discomfort [Unknown]
  - Migraine [Unknown]
  - Myalgia [Unknown]
  - Diarrhoea [Unknown]
  - Anxiety [Unknown]
  - Musculoskeletal stiffness [Unknown]
